FAERS Safety Report 6222949-X (Version None)
Quarter: 2009Q2

REPORT INFORMATION
  Report Type: 
  Country: None (occurrence: None)
  Receive Date: 20090611
  Receipt Date: 20090609
  Transmission Date: 20091009
  Serious: Yes (Death, Life-Threatening, Hospitalization)
  Sender: FDA-Public Use
  Company Number: DE-BRISTOL-MYERS SQUIBB COMPANY-14637565

PATIENT
  Age: 67 Year
  Sex: Female

DRUGS (4)
  1. TAXOL [Suspect]
     Indication: BREAST CANCER
     Dosage: THERAPY STARTED ON 01APR09
     Route: 042
     Dates: start: 20090422, end: 20090422
  2. AVASTIN [Suspect]
     Indication: BREAST CANCER
     Route: 042
     Dates: start: 20090415, end: 20090415
  3. METOCLOPRAMIDE [Concomitant]
     Dates: start: 20090401
  4. LETROZOLE [Concomitant]
     Dates: start: 20060501

REACTIONS (3)
  - ANOREXIA [None]
  - GASTROINTESTINAL HAEMORRHAGE [None]
  - GASTROOESOPHAGITIS [None]
